FAERS Safety Report 16226620 (Version 2)
Quarter: 2019Q2

REPORT INFORMATION
  Report Type: Spontaneous
  Country: CA (occurrence: CA)
  Receive Date: 20190423
  Receipt Date: 20190504
  Transmission Date: 20190711
  Serious: Yes (Other)
  Sender: FDA-Public Use
  Company Number: CA-AUROBINDO-AUR-APL-2019-021462

PATIENT

DRUGS (2)
  1. AURO-TOPIRAMATE 25 MG TABLET [Suspect]
     Active Substance: TOPIRAMATE
     Indication: ALCOHOLISM
     Dosage: TWO TO THREE TABLETS PER A DAY
     Route: 048
     Dates: start: 20180612, end: 20180617
  2. AURO-TOPIRAMATE 25 MG TABLET [Suspect]
     Active Substance: TOPIRAMATE
     Indication: MIGRAINE PROPHYLAXIS

REACTIONS (6)
  - Psychotic disorder [Recovered/Resolved]
  - Visual impairment [Recovered/Resolved]
  - Hallucination [Recovered/Resolved]
  - Hypersomnia [Recovered/Resolved]
  - Depersonalisation/derealisation disorder [Recovered/Resolved]
  - Aggression [Recovered/Resolved]

NARRATIVE: CASE EVENT DATE: 20180612
